FAERS Safety Report 7789748-9 (Version None)
Quarter: 2011Q3

REPORT INFORMATION
  Report Type: 
  Country: None (occurrence: None)
  Receive Date: 20110930
  Receipt Date: 20110224
  Transmission Date: 20111222
  Serious: No
  Sender: FDA-Public Use
  Company Number: US-ASTRAZENECA-2011SE09249

PATIENT
  Age: 70 Year
  Sex: Female

DRUGS (5)
  1. CALCIUM CARBONATE [Concomitant]
  2. MULTI-VITAMIN [Concomitant]
  3. FERROUS SULFATE TAB [Concomitant]
  4. VITAMIN D [Concomitant]
  5. ARIMIDEX [Suspect]
     Route: 048

REACTIONS (5)
  - OEDEMA PERIPHERAL [None]
  - JOINT SWELLING [None]
  - PAIN [None]
  - DRUG DOSE OMISSION [None]
  - ADVERSE DRUG REACTION [None]
